FAERS Safety Report 13765246 (Version 1)
Quarter: 2017Q3

REPORT INFORMATION
  Report Type: Spontaneous
  Country: GB (occurrence: GB)
  Receive Date: 20170718
  Receipt Date: 20170718
  Transmission Date: 20171127
  Serious: Yes (Hospitalization, Other)
  Sender: FDA-Public Use
  Company Number: GB-IPSEN BIOPHARMACEUTICALS, INC.-2017-06942

PATIENT
  Age: 77 Year
  Sex: Female

DRUGS (3)
  1. OCTREOTIDE. [Suspect]
     Active Substance: OCTREOTIDE
     Indication: NEUROENDOCRINE TUMOUR
  2. SOMATULINE AUTOGEL [Suspect]
     Active Substance: LANREOTIDE ACETATE
     Dosage: NOT REPORTED
     Route: 065
     Dates: start: 2015
  3. SOMATULINE AUTOGEL [Suspect]
     Active Substance: LANREOTIDE ACETATE
     Indication: NEUROENDOCRINE TUMOUR
     Dosage: NOT REPORTED
     Route: 065
     Dates: start: 2011

REACTIONS (14)
  - Tumour necrosis [Unknown]
  - Tumour marker increased [Unknown]
  - Biliary dilatation [Unknown]
  - Weight decreased [Unknown]
  - Abdominal pain [Unknown]
  - Pyrexia [Unknown]
  - Metastases to bone [Unknown]
  - Flushing [Unknown]
  - Vomiting [Unknown]
  - Confusional state [Unknown]
  - Diarrhoea [Unknown]
  - Disease progression [Unknown]
  - Decreased appetite [Unknown]
  - Inappropriate schedule of drug administration [Unknown]
